FAERS Safety Report 10069102 (Version 3)
Quarter: 2014Q2

REPORT INFORMATION
  Report Type: Report from Study
  Country: BR (occurrence: BR)
  Receive Date: 20140409
  Receipt Date: 20140613
  Transmission Date: 20141212
  Serious: Yes (Other)
  Sender: FDA-Public Use
  Company Number: PHHY2014BR041738

PATIENT
  Sex: Female
  Weight: 60 kg

DRUGS (1)
  1. RITALINA [Suspect]
     Indication: ATTENTION DEFICIT/HYPERACTIVITY DISORDER
     Dosage: 3 DF IN THE MORNING
     Dates: end: 201403

REACTIONS (5)
  - Bipolar disorder [Recovering/Resolving]
  - Sedation [Unknown]
  - Anxiety [Unknown]
  - Disturbance in attention [Unknown]
  - Drug ineffective [Unknown]
